FAERS Safety Report 6443940-4 (Version None)
Quarter: 2009Q4

REPORT INFORMATION
  Report Type: 
  Country: None (occurrence: None)
  Receive Date: 20091113
  Receipt Date: 20091106
  Transmission Date: 20100525
  Serious: Yes (Other)
  Sender: FDA-Public Use
  Company Number: 2009SP032691

PATIENT
  Age: 27 Year
  Sex: Female
  Weight: 54 kg

DRUGS (3)
  1. IMPLANON [Suspect]
     Indication: CONTRACEPTION
     Dosage: 68 MG; UNK;SC
     Route: 058
     Dates: start: 20080101
  2. ZODOL [Concomitant]
  3. PREDNISONE TAB [Concomitant]

REACTIONS (3)
  - COITAL BLEEDING [None]
  - ENDOMETRIAL CANCER [None]
  - POLYMENORRHOEA [None]
